FAERS Safety Report 9263138 (Version 1)
Quarter: 2013Q2

REPORT INFORMATION
  Report Type: Spontaneous
  Country: DE (occurrence: DE)
  Receive Date: 20130430
  Receipt Date: 20130430
  Transmission Date: 20140414
  Serious: Yes (Life-Threatening)
  Sender: FDA-Public Use
  Company Number: DE-TEVA-398495GER

PATIENT
  Age: 67 Year
  Sex: Male
  Weight: 99.8 kg

DRUGS (1)
  1. OXALIPLATIN GRY 100 MG [Suspect]
     Indication: COLON CANCER
     Route: 042

REACTIONS (5)
  - Bradycardia [Recovered/Resolved]
  - Bronchospasm [Recovered/Resolved]
  - Hypertension [Recovered/Resolved]
  - Oxygen saturation decreased [Recovered/Resolved]
  - Hypoaesthesia oral [Recovered/Resolved]
